FAERS Safety Report 25945856 (Version 2)
Quarter: 2025Q4

REPORT INFORMATION
  Report Type: Spontaneous
  Country: US (occurrence: US)
  Receive Date: 20251021
  Receipt Date: 20251224
  Transmission Date: 20260117
  Serious: Yes (Life-Threatening, Hospitalization, Disabling, Other)
  Sender: PFIZER
  Company Number: US-PFIZER INC-PV202500124002

PATIENT
  Age: 63 Year
  Weight: 65.76 kg

DRUGS (1)
  1. DILANTIN [Suspect]
     Active Substance: PHENYTOIN
     Indication: Generalised tonic-clonic seizure
     Dosage: 100 MG, 2X/DAY
     Route: 048
     Dates: start: 1982

REACTIONS (7)
  - Constipation [Recovering/Resolving]
  - Volvulus [Recovering/Resolving]
  - Memory impairment [Unknown]
  - Feeling jittery [Recovering/Resolving]
  - Blood pressure increased [Unknown]
  - Mitral valve replacement [Unknown]
  - Dizziness [Unknown]

NARRATIVE: CASE EVENT DATE: 19890101
